FAERS Safety Report 6783730-6 (Version None)
Quarter: 2010Q2

REPORT INFORMATION
  Report Type: 
  Country: None (occurrence: None)
  Receive Date: 20100622
  Receipt Date: 20100621
  Transmission Date: 20101027
  Serious: Yes (Life-Threatening)
  Sender: FDA-Public Use
  Company Number: IT-ROCHE-710204

PATIENT
  Sex: Female

DRUGS (1)
  1. RIVOTRIL [Suspect]
     Indication: AGITATION
     Dosage: FRQUENCY: DIALY
     Route: 048
     Dates: start: 20100525, end: 20100526

REACTIONS (2)
  - ACUTE RESPIRATORY FAILURE [None]
  - BRONCHOSPASM [None]
